FAERS Safety Report 11827661 (Version 1)
Quarter: 2015Q4

REPORT INFORMATION
  Report Type: Spontaneous
  Country: US (occurrence: US)
  Receive Date: 20151211
  Receipt Date: 20151211
  Transmission Date: 20160305
  Serious: No
  Sender: FDA-Public Use
  Company Number: US-BAYER-2015-486448

PATIENT
  Age: 48 Year
  Sex: Female
  Weight: 79.82 kg

DRUGS (1)
  1. ALEVE [Suspect]
     Active Substance: NAPROXEN SODIUM
     Dosage: 2 DF, ONCE
     Route: 048
     Dates: start: 20151206

REACTIONS (2)
  - Drug effect incomplete [None]
  - Product use issue [None]

NARRATIVE: CASE EVENT DATE: 20151206
